FAERS Safety Report 23111139 (Version 1)
Quarter: 2023Q4

REPORT INFORMATION
  Report Type: Spontaneous
  Country: JP (occurrence: JP)
  Receive Date: 20231026
  Receipt Date: 20231026
  Transmission Date: 20240109
  Serious: Yes (Other)
  Sender: FDA-Public Use
  Company Number: JP-JAZZ-2021-JP-002830

PATIENT
  Age: 19 Year
  Sex: Male
  Weight: 36.75 kg

DRUGS (1)
  1. DEFITELIO [Suspect]
     Active Substance: DEFIBROTIDE SODIUM
     Indication: Venoocclusive liver disease
     Dosage: 22 MILLIGRAM, QD
     Route: 042
     Dates: start: 20210122, end: 20210205

REACTIONS (3)
  - Muscle haemorrhage [Recovered/Resolved]
  - Mouth haemorrhage [Recovering/Resolving]
  - Off label use [Unknown]

NARRATIVE: CASE EVENT DATE: 20210122
